FAERS Safety Report 8566330 (Version 3)
Quarter: 2013Q1

REPORT INFORMATION
  Report Type: Report from Study
  Country: US (occurrence: US)
  Receive Date: 20120517
  Receipt Date: 20130205
  Transmission Date: 20140127
  Serious: Yes (Death, Hospitalization, Other)
  Sender: FDA-Public Use
  Company Number: US-ASTELLAS-2012US004720

PATIENT
  Sex: Male
  Weight: 75 kg

DRUGS (1)
  1. ERLOTINIB TABLET [Suspect]
     Indication: BRONCHIOLOALVEOLAR CARCINOMA
     Dosage: 150 MG, UID/QD
     Route: 048
     Dates: start: 20120227

REACTIONS (4)
  - Bronchioloalveolar carcinoma [Fatal]
  - General physical health deterioration [Unknown]
  - Nausea [Unknown]
  - Rash [Unknown]
